FAERS Safety Report 7924426 (Version 2)
Quarter: 2013Q2

REPORT INFORMATION
  Report Type: Report from Study
  Country: MX (occurrence: MX)
  Receive Date: 20110502
  Receipt Date: 20130529
  Transmission Date: 20140414
  Serious: Yes (Other)
  Sender: FDA-Public Use
  Company Number: PHHY2011MX33566

PATIENT
  Age: 65 Year
  Sex: Female

DRUGS (1)
  1. ACLASTA [Suspect]
     Indication: OSTEOPOROSIS
     Dosage: 5 MG/100ML, EACH YEAR
     Route: 042
     Dates: start: 201003

REACTIONS (2)
  - Tibia fracture [Not Recovered/Not Resolved]
  - Foot fracture [Not Recovered/Not Resolved]
